FAERS Safety Report 10084142 (Version 1)
Quarter: 2014Q2

REPORT INFORMATION
  Report Type: Spontaneous
  Country: US (occurrence: US)
  Receive Date: 20140417
  Receipt Date: 20140417
  Transmission Date: 20141212
  Serious: Yes (Other)
  Sender: FDA-Public Use
  Company Number: US-TARO PHARMACEUTICALS U.S.A., INC-2014SUN00825

PATIENT
  Age: 86 Year
  Sex: Female

DRUGS (4)
  1. WARFARIN [Suspect]
     Indication: DEEP VEIN THROMBOSIS
     Dosage: UNK
     Route: 065
  2. WARFARIN [Suspect]
     Dosage: UNK
     Route: 065
  3. PREDNISONE [Suspect]
     Indication: POLYMYALGIA RHEUMATICA
     Dosage: 5 MG/DAY
     Route: 065
  4. TERIPARATIDE [Suspect]
     Indication: BONE DENSITY DECREASED
     Dosage: 20 MCG/DAY
     Route: 058

REACTIONS (1)
  - Calciphylaxis [Recovering/Resolving]
